FAERS Safety Report 8838739 (Version 4)
Quarter: 2013Q3

REPORT INFORMATION
  Report Type: Spontaneous
  Country: US (occurrence: US)
  Receive Date: 20121012
  Receipt Date: 20130712
  Transmission Date: 20140515
  Serious: No
  Sender: FDA-Public Use
  Company Number: US-009507513-1209USA010719

PATIENT
  Sex: Male

DRUGS (4)
  1. PEG-INTRON [Suspect]
     Indication: HEPATITIS C
     Dosage: UNK
     Dates: start: 20120810
  2. REBETOL [Suspect]
     Indication: HEPATITIS C
     Dosage: UNK
     Dates: start: 20120810
  3. VICTRELIS [Suspect]
     Indication: HEPATITIS C
     Dosage: UNK
     Dates: start: 20120914
  4. PROCRIT [Concomitant]

REACTIONS (9)
  - Vision blurred [Recovered/Resolved]
  - Eye irritation [Unknown]
  - Aphagia [Unknown]
  - Rhinitis [Unknown]
  - Memory impairment [Unknown]
  - Malaise [Unknown]
  - Haemoglobin decreased [Unknown]
  - Fatigue [Unknown]
  - Anaemia [Recovered/Resolved]
